FAERS Safety Report 11176700 (Version 1)
Quarter: 2015Q2

REPORT INFORMATION
  Report Type: Spontaneous
  Country: US (occurrence: None)
  Receive Date: 20150608
  Receipt Date: 20150608
  Transmission Date: 20150821
  Serious: Yes (Other)
  Sender: FDA-Public Use
  Company Number: ADR-2015-01089

PATIENT
  Age: 49 Year
  Sex: Female

DRUGS (3)
  1. MORPHINE [Suspect]
     Active Substance: MORPHINE
  2. BACLOFEN. [Suspect]
     Active Substance: BACLOFEN
     Indication: SPINAL PAIN
  3. BUPIVACAINE [Suspect]
     Active Substance: BUPIVACAINE
     Indication: SPINAL PAIN

REACTIONS (5)
  - Nervous system disorder [None]
  - Therapeutic response decreased [None]
  - Pain [None]
  - Cerebrovascular accident [None]
  - Device breakage [None]

NARRATIVE: CASE EVENT DATE: 20140119
